FAERS Safety Report 7915605-0 (Version None)
Quarter: 2011Q4

REPORT INFORMATION
  Report Type: 
  Country: None (occurrence: None)
  Receive Date: 20111115
  Receipt Date: 20110629
  Transmission Date: 20120403
  Serious: Yes (Death)
  Sender: FDA-Public Use
  Company Number: US-BRISTOL-MYERS SQUIBB COMPANY-15863384

PATIENT
  Age: 62 Year
  Sex: Male

DRUGS (6)
  1. LANTUS [Concomitant]
  2. METFORMIN HCL [Concomitant]
  3. PERCOCET [Concomitant]
  4. YERVOY [Suspect]
     Indication: METASTATIC MALIGNANT MELANOMA
     Dates: start: 20110601
  5. AMLODIPINE [Concomitant]
  6. SIMVASTATIN [Concomitant]

REACTIONS (1)
  - HEPATIC FAILURE [None]
